FAERS Safety Report 19813822 (Version 1)
Quarter: 2021Q3

REPORT INFORMATION
  Report Type: Spontaneous
  Country: FR (occurrence: FR)
  Receive Date: 20210909
  Receipt Date: 20210909
  Transmission Date: 20211014
  Serious: Yes (Other)
  Sender: FDA-Public Use
  Company Number: FR-MYLANLABS-2021M1060046

PATIENT
  Age: 94 Year
  Sex: Female

DRUGS (1)
  1. SALBUTAMOL [Suspect]
     Active Substance: ALBUTEROL
     Indication: PRODUCT USED FOR UNKNOWN INDICATION
     Dosage: UNK, 100MCG/DOSE
     Route: 055

REACTIONS (4)
  - Fall [Unknown]
  - Cognitive disorder [Unknown]
  - Dementia [Unknown]
  - Extra dose administered [Unknown]
